FAERS Safety Report 22245454 (Version 6)
Quarter: 2023Q4

REPORT INFORMATION
  Report Type: Spontaneous
  Country: JP (occurrence: JP)
  Receive Date: 20230424
  Receipt Date: 20231114
  Transmission Date: 20240109
  Serious: Yes (Hospitalization, Other)
  Sender: FDA-Public Use
  Company Number: JP-GLAXOSMITHKLINE-JP2023JPN004893

PATIENT

DRUGS (7)
  1. DAPRODUSTAT [Suspect]
     Active Substance: DAPRODUSTAT
     Indication: Nephrogenic anaemia
     Dosage: UNK
     Route: 048
     Dates: start: 20221018, end: 20221123
  2. METHIMAZOLE [Suspect]
     Active Substance: METHIMAZOLE
     Indication: Graves^ disease
     Dosage: 5 MG, QOD
     Route: 048
     Dates: start: 20221113, end: 20221114
  3. VANCOMYCIN [Suspect]
     Active Substance: VANCOMYCIN
     Indication: Device related infection
     Dosage: UNK, PROBABLY 3 TIMES/2 WEEKS
     Route: 041
     Dates: start: 20221022
  4. ASPIRIN ENTERIC-COATED TABLET [Concomitant]
     Dosage: 100 MG, 1D
     Route: 048
  5. BISOPROLOL FUMARATE [Concomitant]
     Active Substance: BISOPROLOL FUMARATE
     Dosage: 2.5 MG, 1D
     Route: 048
  6. MAGNESIUM OXIDE [Concomitant]
     Active Substance: MAGNESIUM OXIDE
     Dosage: 330 MG, 1D
     Route: 048
  7. AMLODIPINE BESILATE ORALLY DISINTEGRATING TABLET [Concomitant]
     Dosage: 2.5 MG, 1D
     Route: 048

REACTIONS (9)
  - Neutropenia [Recovered/Resolved]
  - Central hypothyroidism [Recovered/Resolved]
  - Device related infection [Recovered/Resolved]
  - Graves^ disease [Recovering/Resolving]
  - Myelodysplastic syndrome with excess blasts [Recovered/Resolved]
  - Hyperthyroidism [Recovering/Resolving]
  - Hypothyroidism [Recovering/Resolving]
  - Catheter placement [Unknown]
  - Oedema [Unknown]

NARRATIVE: CASE EVENT DATE: 20221020
